FAERS Safety Report 10265730 (Version 1)
Quarter: 2014Q2

REPORT INFORMATION
  Report Type: Spontaneous
  Country: US (occurrence: US)
  Receive Date: 20140627
  Receipt Date: 20140627
  Transmission Date: 20141212
  Serious: No
  Sender: FDA-Public Use
  Company Number: US-PFIZER INC-2014176576

PATIENT
  Age: 58 Year
  Sex: Male

DRUGS (1)
  1. CELEBREX [Suspect]
     Indication: GOUT
     Dosage: UNK

REACTIONS (1)
  - Ulcer [Unknown]
